FAERS Safety Report 8458713-0 (Version None)
Quarter: 2012Q2

REPORT INFORMATION
  Report Type: 
  Country: None (occurrence: None)
  Receive Date: 20120622
  Receipt Date: 20120614
  Transmission Date: 20120825
  Serious: Yes (Hospitalization)
  Sender: FDA-Public Use
  Company Number: US-BAYER-2011-049645

PATIENT
  Age: 23 Year
  Sex: Female
  Weight: 83.9 kg

DRUGS (16)
  1. YASMIN [Suspect]
     Indication: CONTRACEPTION
     Dosage: UNK
     Dates: start: 20060101, end: 20080101
  2. OMEPRAZOLE [Concomitant]
     Dosage: 40 MG, BID
     Route: 048
  3. PROTONIX [Concomitant]
     Dosage: 40 MG, UNK
     Route: 048
     Dates: start: 20091005
  4. FENTANYL [Concomitant]
     Dosage: 100 MG, UNK
     Route: 042
     Dates: start: 20091102
  5. PHENERGAN [Concomitant]
     Dosage: 12.5 MG, UNK
     Route: 030
     Dates: start: 20091107
  6. NORCO [Concomitant]
     Dosage: 5 MG, UNK
     Route: 048
     Dates: start: 20091107
  7. YAZ [Suspect]
     Indication: CONTRACEPTION
     Dosage: UNK
     Dates: start: 20060101, end: 20080101
  8. DILAUDID [Concomitant]
     Dosage: 1 MG, UNK
     Route: 030
     Dates: start: 20091107
  9. PEPCID [Concomitant]
     Dosage: 20 MG, BID
     Route: 048
  10. VERSED [Concomitant]
     Dosage: 5 MG, UNK
     Route: 042
     Dates: start: 20091102
  11. NORCO [Concomitant]
     Dosage: 325 MG, UNK
     Route: 048
  12. VICODIN [Concomitant]
     Indication: PAIN
     Dosage: 5/500 TABLET; 1-2 TABLETS EVERY 4-6 HOURS, PRN
     Route: 048
     Dates: start: 20091005
  13. ATIVAN [Concomitant]
     Dosage: 1 MG, UNK
     Route: 048
     Dates: start: 20091005
  14. ZOFRAN [Concomitant]
     Indication: NAUSEA
     Dosage: 1 DF, TID
     Route: 048
  15. MAGNESIUM HYDROXIDE TAB [Concomitant]
     Dosage: UNK UNK, PRN
     Route: 048
  16. TRAZODONE HCL [Concomitant]
     Indication: SLEEP DISORDER THERAPY
     Dosage: 50 MG,TABS (INTERPRETED AS TABLETS); 1 TAB AT BEDTIME AS NEEDED
     Dates: start: 20091107

REACTIONS (5)
  - PANCREATITIS [None]
  - GALLBLADDER DISORDER [None]
  - CHOLECYSTITIS CHRONIC [None]
  - CHOLELITHIASIS [None]
  - PAIN [None]
